FAERS Safety Report 7079040-2 (Version None)
Quarter: 2010Q4

REPORT INFORMATION
  Report Type: 
  Country: None (occurrence: None)
  Receive Date: 20101102
  Receipt Date: 20101019
  Transmission Date: 20110411
  Serious: Yes (Hospitalization)
  Sender: FDA-Public Use
  Company Number: DE-BAYER-201032129GPV

PATIENT
  Age: 58 Year
  Sex: Female
  Weight: 87 kg

DRUGS (10)
  1. SORAFENIB [Suspect]
     Indication: HEPATIC NEOPLASM MALIGNANT
     Dosage: TOTAL DAILY DOSE: 800 MG  UNIT DOSE: 200 MG
     Route: 048
     Dates: start: 20100713, end: 20100713
  2. SORAFENIB [Suspect]
     Route: 048
     Dates: start: 20100630, end: 20100630
  3. SORAFENIB [Suspect]
     Route: 048
     Dates: start: 20100713, end: 20100714
  4. SORAFENIB [Suspect]
     Dosage: UNIT DOSE: 400 MG
     Route: 048
     Dates: start: 20100622, end: 20100729
  5. SORAFENIB [Suspect]
     Route: 048
     Dates: start: 20100730, end: 20100801
  6. ERLOTINIB OR PLACEBO [Suspect]
     Indication: HEPATIC NEOPLASM MALIGNANT
     Route: 048
     Dates: start: 20100730, end: 20100801
  7. ERLOTINIB OR PLACEBO [Suspect]
     Route: 048
     Dates: start: 20100622, end: 20100630
  8. ERLOTINIB OR PLACEBO [Suspect]
     Route: 048
     Dates: start: 20100713, end: 20100714
  9. RANITIDINE HCL [Concomitant]
     Indication: GASTRITIS
     Route: 048
     Dates: start: 20100615
  10. EFFORTIL [Concomitant]
     Indication: HYPOTENSION
     Route: 048
     Dates: start: 20100615

REACTIONS (3)
  - DEHYDRATION [None]
  - DIARRHOEA [None]
  - INFECTION [None]
